FAERS Safety Report 10043950 (Version 2)
Quarter: 2014Q1

REPORT INFORMATION
  Report Type: Spontaneous
  Country: US (occurrence: US)
  Receive Date: 20140328
  Receipt Date: 20140328
  Transmission Date: 20141002
  Serious: No
  Sender: FDA-Public Use
  Company Number: US-MYLANLABS-2013S1010374

PATIENT
  Age: 63 Year
  Sex: Female
  Weight: 66.23 kg

DRUGS (9)
  1. EMSAM (SELEGILINE TRANSDERMAL SYSTEM) [Suspect]
     Indication: DEPRESSION
     Dosage: CHANGED PATCH QD
     Route: 062
     Dates: start: 20130507
  2. EMSAM (SELEGILINE TRANSDERMAL SYSTEM) [Suspect]
     Indication: ANXIETY
     Dosage: CHANGED PATCH QD
     Route: 062
     Dates: start: 20130507
  3. EMSAM (SELEGILINE TRANSDERMAL SYSTEM) [Suspect]
     Indication: OFF LABEL USE
     Dosage: CHANGED PATCH QD
     Route: 062
     Dates: start: 20130507
  4. LORAZEPAM [Concomitant]
  5. DIPHENOXYLATE W/ATROPINE SULFATE [Concomitant]
  6. PRAVASTATIN [Concomitant]
  7. LOSARTAN [Concomitant]
  8. LEVOTHYROXINE [Concomitant]
  9. ESTROGEN [Concomitant]

REACTIONS (7)
  - Tardive dyskinesia [Not Recovered/Not Resolved]
  - Blood pressure increased [Recovered/Resolved]
  - Insomnia [Not Recovered/Not Resolved]
  - Affect lability [Not Recovered/Not Resolved]
  - Memory impairment [Not Recovered/Not Resolved]
  - Dry mouth [Not Recovered/Not Resolved]
  - Dry eye [Not Recovered/Not Resolved]
